FAERS Safety Report 8922560 (Version 12)
Quarter: 2013Q2

REPORT INFORMATION
  Report Type: Report from Study
  Country: MX (occurrence: MX)
  Receive Date: 20121123
  Receipt Date: 20130627
  Transmission Date: 20140414
  Serious: Yes (Other)
  Sender: FDA-Public Use
  Company Number: PHHY2012MX106514

PATIENT
  Age: 9 Year
  Sex: Female

DRUGS (5)
  1. SANDIMMUNE NEORAL [Suspect]
     Indication: APLASTIC ANAEMIA
     Dosage: 1.4 ML, DAILY
     Route: 048
     Dates: start: 201207, end: 201303
  2. SANDIMMUNE NEORAL [Suspect]
     Dosage: 1.1 ML, DAILY
     Route: 048
     Dates: start: 201303
  3. KLARICID [Concomitant]
     Dosage: 8 ML, QD
     Dates: start: 201302
  4. RHINOCORT (BUDESONIDE) [Concomitant]
     Indication: NASAL CONGESTION
     Dosage: 2 DF, UNK
     Route: 045
     Dates: start: 201302
  5. FOLIC ACID [Concomitant]
     Dosage: 1 DF, DAILY
     Dates: start: 201211

REACTIONS (32)
  - Haematoma [Not Recovered/Not Resolved]
  - Aggression [Unknown]
  - Haemorrhage [Recovered/Resolved]
  - Melanocytic naevus [Not Recovered/Not Resolved]
  - Swelling face [Not Recovered/Not Resolved]
  - Gastritis [Recovering/Resolving]
  - Ear pain [Unknown]
  - Contusion [Not Recovered/Not Resolved]
  - Atopy [Unknown]
  - Eye swelling [Not Recovered/Not Resolved]
  - Dizziness [Not Recovered/Not Resolved]
  - Loose tooth [Recovered/Resolved]
  - Dental caries [Not Recovered/Not Resolved]
  - Haemoglobin decreased [Unknown]
  - Rash [Not Recovered/Not Resolved]
  - Pallor [Not Recovered/Not Resolved]
  - White blood cell count decreased [Unknown]
  - Influenza [Recovering/Resolving]
  - Nasal congestion [Unknown]
  - Nausea [Unknown]
  - Abdominal pain upper [Unknown]
  - Oropharyngeal pain [Unknown]
  - Pyrexia [Recovered/Resolved]
  - Cough [Not Recovered/Not Resolved]
  - Diarrhoea [Not Recovered/Not Resolved]
  - Vomiting [Not Recovered/Not Resolved]
  - Decreased appetite [Not Recovered/Not Resolved]
  - Immunosuppressant drug level increased [Not Recovered/Not Resolved]
  - Platelet count abnormal [Not Recovered/Not Resolved]
  - Neutrophil count abnormal [Not Recovered/Not Resolved]
  - Drug ineffective [Not Recovered/Not Resolved]
  - Drug interaction [Not Recovered/Not Resolved]
